FAERS Safety Report 9028337 (Version 2)
Quarter: 2013Q2

REPORT INFORMATION
  Report Type: Spontaneous
  Country: ES (occurrence: ES)
  Receive Date: 20130124
  Receipt Date: 20130409
  Transmission Date: 20140414
  Serious: No
  Sender: FDA-Public Use
  Company Number: ES-009507513-1301ESP009255

PATIENT
  Age: 76 Year
  Sex: Male

DRUGS (2)
  1. SYCREST [Suspect]
     Indication: BIPOLAR DISORDER
     Dosage: UNK
     Route: 060
     Dates: start: 201210, end: 201301
  2. AGOMELATINE [Interacting]
     Indication: BIPOLAR DISORDER
     Dosage: UNK
     Dates: start: 201210, end: 201301

REACTIONS (2)
  - Rash generalised [Recovered/Resolved]
  - Drug interaction [Recovered/Resolved]
